FAERS Safety Report 11997571 (Version 1)
Quarter: 2016Q1

REPORT INFORMATION
  Report Type: Spontaneous
  Country: US (occurrence: US)
  Receive Date: 20160203
  Receipt Date: 20160203
  Transmission Date: 20160526
  Serious: Yes (Hospitalization)
  Sender: FDA-Public Use
  Company Number: US-ELI_LILLY_AND_COMPANY-US201602000081

PATIENT
  Sex: Female

DRUGS (11)
  1. DULOXETINE. [Suspect]
     Active Substance: DULOXETINE
     Indication: DEPRESSION
  2. VERAPAMIL [Concomitant]
     Active Substance: VERAPAMIL HYDROCHLORIDE
     Dosage: UNK, UNKNOWN
  3. OXYCODONE [Concomitant]
     Active Substance: OXYCODONE
     Dosage: UNK, UNKNOWN
  4. CYMBALTA [Suspect]
     Active Substance: DULOXETINE HYDROCHLORIDE
     Indication: DEPRESSION
  5. DULOXETINE. [Suspect]
     Active Substance: DULOXETINE
     Indication: FIBROMYALGIA
     Dosage: 60 MG, BID
     Route: 065
  6. ATORVASTATIN [Concomitant]
     Active Substance: ATORVASTATIN
     Dosage: UNK, UNKNOWN
  7. CYMBALTA [Suspect]
     Active Substance: DULOXETINE HYDROCHLORIDE
     Indication: FIBROMYALGIA
     Dosage: 60 MG, BID
     Route: 065
  8. SYNTHROID [Concomitant]
     Active Substance: LEVOTHYROXINE SODIUM
     Dosage: UNK, UNKNOWN
  9. METOPROLOL. [Concomitant]
     Active Substance: METOPROLOL
     Dosage: UNK, UNKNOWN
  10. BACLOFEN. [Concomitant]
     Active Substance: BACLOFEN
     Dosage: UNK, UNKNOWN
  11. OXYCONTIN [Concomitant]
     Active Substance: OXYCODONE HYDROCHLORIDE
     Dosage: UNK, UNKNOWN

REACTIONS (5)
  - Electrolyte imbalance [Unknown]
  - Short-bowel syndrome [Not Recovered/Not Resolved]
  - Malnutrition [Unknown]
  - Stoma complication [Unknown]
  - Skin bacterial infection [Unknown]
